FAERS Safety Report 6348967-9 (Version None)
Quarter: 2009Q3

REPORT INFORMATION
  Report Type: 
  Country: None (occurrence: None)
  Receive Date: 20090908
  Receipt Date: 20090827
  Transmission Date: 20100115
  Serious: Yes (Hospitalization)
  Sender: FDA-Public Use
  Company Number: CIP09002355

PATIENT
  Age: 87 Year
  Sex: Male

DRUGS (3)
  1. MACRODANTIN [Suspect]
     Indication: URINARY TRACT INFECTION
     Dosage: 50 MG TWICE DAILY, ORAL
     Route: 048
     Dates: start: 20090822
  2. PRILOSEC /00661201/ (OMEPRAZOLE) [Concomitant]
  3. OTHER ALIMENTARY TRACT AND METABOLISM PRODUCT [Concomitant]

REACTIONS (1)
  - HAEMORRHAGE URINARY TRACT [None]
